FAERS Safety Report 23933902 (Version 1)
Quarter: 2024Q2

REPORT INFORMATION
  Report Type: Spontaneous
  Country: US (occurrence: US)
  Receive Date: 20240603
  Receipt Date: 20240603
  Transmission Date: 20240716
  Serious: No
  Sender: FDA-Public Use
  Company Number: US-SA-SAC20240528000435

PATIENT
  Sex: Male
  Weight: 108.8 kg

DRUGS (21)
  1. DUPIXENT [Suspect]
     Active Substance: DUPILUMAB
     Indication: Dermatitis atopic
     Dosage: 300 MG, QOW
     Route: 058
     Dates: start: 2023
  2. DUPIXENT [Suspect]
     Active Substance: DUPILUMAB
     Dosage: 300 MG, QOW
     Route: 058
     Dates: start: 20240510
  3. GAMUNEX-C [Concomitant]
     Active Substance: HUMAN IMMUNOGLOBULIN G
  4. METOPROLOL SUCCINATE [Concomitant]
     Active Substance: METOPROLOL SUCCINATE
  5. FLUCONAZOLE [Concomitant]
     Active Substance: FLUCONAZOLE
  6. NEURONTIN [Concomitant]
     Active Substance: GABAPENTIN
  7. ANASTROZOLE [Concomitant]
     Active Substance: ANASTROZOLE
  8. TESTOSTERONE CYPIONATE [Concomitant]
     Active Substance: TESTOSTERONE CYPIONATE
  9. ARGININE [Concomitant]
     Active Substance: ARGININE
  10. TRAMADOL HCL [Concomitant]
     Active Substance: TRAMADOL HYDROCHLORIDE
  11. CELLCEPT [Concomitant]
     Active Substance: MYCOPHENOLATE MOFETIL
  12. DIPROLENE [Concomitant]
     Active Substance: BETAMETHASONE DIPROPIONATE
  13. CIALIS [Concomitant]
     Active Substance: TADALAFIL
  14. VIAGRA [Concomitant]
     Active Substance: SILDENAFIL CITRATE
  15. .ALPHA.-TOCOPHEROL [Concomitant]
     Active Substance: .ALPHA.-TOCOPHEROL
  16. VITAMIN C [Concomitant]
     Active Substance: ASCORBIC ACID
  17. MESTINON [Concomitant]
     Active Substance: PYRIDOSTIGMINE BROMIDE
  18. MAGNESIUM [Concomitant]
     Active Substance: MAGNESIUM
  19. PROBIOTICS NOS [Concomitant]
     Active Substance: PROBIOTICS NOS
  20. VITAMINS NOS [Concomitant]
     Active Substance: VITAMINS
  21. FLUAD QUAD [Concomitant]

REACTIONS (2)
  - Dermatitis atopic [Not Recovered/Not Resolved]
  - Drug ineffective [Unknown]
